FAERS Safety Report 9586048 (Version 6)
Quarter: 2014Q1

REPORT INFORMATION
  Report Type: Spontaneous
  Country: CA (occurrence: CA)
  Receive Date: 20131003
  Receipt Date: 20140324
  Transmission Date: 20141002
  Serious: Yes (Life-Threatening, Hospitalization)
  Sender: FDA-Public Use
  Company Number: CA-ROCHE-1279185

PATIENT
  Age: 75 Year
  Sex: Female

DRUGS (8)
  1. RITUXAN [Suspect]
     Indication: WARM TYPE HAEMOLYTIC ANAEMIA
     Route: 042
     Dates: start: 201301, end: 20130920
  2. HYDROMORPHONE [Concomitant]
  3. VITAMIN B12 [Concomitant]
  4. PREDNISONE [Concomitant]
  5. ACYCLOVIR [Concomitant]
  6. NIFEDIPINE XL [Concomitant]
  7. ALENDRONATE [Concomitant]
  8. SEPTRA [Concomitant]

REACTIONS (7)
  - Clostridium difficile infection [Not Recovered/Not Resolved]
  - Urinary tract infection [Unknown]
  - Haemoglobin decreased [Not Recovered/Not Resolved]
  - Chromaturia [Recovering/Resolving]
  - Pain [Unknown]
  - Disease progression [Unknown]
  - Off label use [Unknown]
